FAERS Safety Report 25306938 (Version 2)
Quarter: 2025Q2

REPORT INFORMATION
  Report Type: Spontaneous
  Country: US (occurrence: US)
  Receive Date: 20250513
  Receipt Date: 20250519
  Transmission Date: 20250717
  Serious: Yes (Hospitalization)
  Sender: GLAXOSMITHKLINE
  Company Number: US-GLAXOSMITHKLINE INC-US2025055808

PATIENT

DRUGS (2)
  1. BENLYSTA [Suspect]
     Active Substance: BELIMUMAB
     Indication: Systemic lupus erythematosus
     Dosage: 790 MG, Q4W
     Route: 042
     Dates: start: 20241201, end: 20250430
  2. BENLYSTA [Suspect]
     Active Substance: BELIMUMAB
     Dosage: 790 MG, Q4W
     Route: 042
     Dates: start: 20250501

REACTIONS (4)
  - Hospitalisation [Unknown]
  - Gait inability [Unknown]
  - Abdominal distension [Unknown]
  - Therapeutic response unexpected [Unknown]

NARRATIVE: CASE EVENT DATE: 20250501
